FAERS Safety Report 9407188 (Version 2)
Quarter: 2013Q4

REPORT INFORMATION
  Report Type: Spontaneous
  Country: CA (occurrence: CA)
  Receive Date: 20130718
  Receipt Date: 20131003
  Transmission Date: 20140711
  Serious: Yes (Other)
  Sender: FDA-Public Use
  Company Number: CA-PFIZER INC-2013208773

PATIENT
  Age: 54 Year
  Sex: Male
  Weight: 72.56 kg

DRUGS (10)
  1. EFFEXOR XR [Suspect]
     Indication: GENERALISED ANXIETY DISORDER
     Dosage: 225 MG, 1X/DAY
     Dates: start: 201212, end: 201301
  2. EFFEXOR XR [Suspect]
     Dosage: 300 MG, 1X/DAY
     Dates: start: 201301, end: 201302
  3. EFFEXOR XR [Suspect]
     Dosage: 375 MG, 1X/DAY
     Dates: start: 201302, end: 20130627
  4. EFFEXOR XR [Suspect]
     Dosage: UNK
     Dates: start: 20130627, end: 20130725
  5. PRISTIQ [Suspect]
     Dosage: UNK
  6. MIRTAZAPINE [Concomitant]
     Indication: SLEEP DISORDER
     Dosage: 7.5 MG, 1X/DAY
  7. CLONAZEPAM [Concomitant]
     Indication: ANXIETY
     Dosage: 0.5 MG, 4X/DAY
  8. VENTOLIN [Concomitant]
     Indication: CHRONIC OBSTRUCTIVE PULMONARY DISEASE
     Dosage: 100 UG, 4X/DAY
  9. SPIRIVA [Concomitant]
     Indication: CHRONIC OBSTRUCTIVE PULMONARY DISEASE
     Dosage: 18 UG, 1X/DAY
     Dates: start: 201209
  10. SYMBICORT [Concomitant]
     Indication: CHRONIC OBSTRUCTIVE PULMONARY DISEASE
     Dosage: 200/6UG, 2 PUFFS TWICE DAILY
     Dates: start: 201209

REACTIONS (36)
  - Panic attack [Recovering/Resolving]
  - Agoraphobia [Recovering/Resolving]
  - Hallucination [Unknown]
  - Visual field defect [Unknown]
  - Apathy [Not Recovered/Not Resolved]
  - Sleep disorder [Unknown]
  - Blood pressure increased [Unknown]
  - Urticaria [Unknown]
  - Back pain [Unknown]
  - Anxiety [Not Recovered/Not Resolved]
  - Musculoskeletal stiffness [Not Recovered/Not Resolved]
  - Tremor [Unknown]
  - Confusional state [Not Recovered/Not Resolved]
  - Hypersomnia [Unknown]
  - Hangover [Not Recovered/Not Resolved]
  - Drug withdrawal syndrome [Unknown]
  - Diarrhoea [Unknown]
  - Disturbance in attention [Not Recovered/Not Resolved]
  - Pruritus [Not Recovered/Not Resolved]
  - Rash [Not Recovered/Not Resolved]
  - Hyperhidrosis [Unknown]
  - Antisocial behaviour [Recovering/Resolving]
  - Malaise [Unknown]
  - Memory impairment [Not Recovered/Not Resolved]
  - Activities of daily living impaired [Recovering/Resolving]
  - Weight increased [Unknown]
  - Decreased appetite [Unknown]
  - Dry mouth [Unknown]
  - Vision blurred [Unknown]
  - Abnormal dreams [Unknown]
  - Heart rate increased [Unknown]
  - Contusion [Unknown]
  - Muscle spasms [Unknown]
  - Nervousness [Unknown]
  - Paraesthesia [Unknown]
  - Drug ineffective [Not Recovered/Not Resolved]
